FAERS Safety Report 12591226 (Version 2)
Quarter: 2016Q3

REPORT INFORMATION
  Report Type: Spontaneous
  Country: US (occurrence: US)
  Receive Date: 20160726
  Receipt Date: 20160727
  Transmission Date: 20161109
  Serious: No
  Sender: FDA-Public Use
  Company Number: US-UNITED THERAPEUTICS-UNT-2016-005455

PATIENT
  Age: 24 Year
  Sex: Female
  Weight: 68.48 kg

DRUGS (1)
  1. REMODULIN [Suspect]
     Active Substance: TREPROSTINIL
     Indication: PULMONARY ARTERIAL HYPERTENSION
     Dosage: 0.024 ?G/KG, CONTINUING
     Route: 041
     Dates: start: 20130109

REACTIONS (10)
  - Malaise [Unknown]
  - Diarrhoea [Unknown]
  - Epistaxis [Unknown]
  - Dyspnoea [Unknown]
  - Headache [Unknown]
  - Sneezing [Unknown]
  - Insomnia [Unknown]
  - Cough [Unknown]
  - Dizziness [Unknown]
  - Rhinorrhoea [Unknown]

NARRATIVE: CASE EVENT DATE: 201603
